FAERS Safety Report 10217891 (Version 1)
Quarter: 2014Q2

REPORT INFORMATION
  Report Type: Spontaneous
  Country: GB (occurrence: GB)
  Receive Date: 20140605
  Receipt Date: 20140605
  Transmission Date: 20141212
  Serious: Yes (Death)
  Sender: FDA-Public Use
  Company Number: GB-ROCHE-1412832

PATIENT
  Age: 49 Year
  Sex: Female
  Weight: 78.6 kg

DRUGS (2)
  1. PERJETA [Suspect]
     Indication: BREAST CANCER METASTATIC
     Route: 042
     Dates: start: 20140515, end: 20140515
  2. TRASTUZUMAB [Suspect]
     Indication: BREAST CANCER METASTATIC
     Route: 042
     Dates: start: 20140515, end: 20140515

REACTIONS (2)
  - Blood pressure increased [Fatal]
  - Cerebrovascular accident [Fatal]
